FAERS Safety Report 6608837-5 (Version None)
Quarter: 2010Q1

REPORT INFORMATION
  Report Type: 
  Country: None (occurrence: None)
  Receive Date: 20100301
  Receipt Date: 20100217
  Transmission Date: 20100710
  Serious: Yes (Death, Other)
  Sender: FDA-Public Use
  Company Number: US-PFIZER INC-2010003872

PATIENT
  Sex: Male
  Weight: 51.7 kg

DRUGS (6)
  1. ZOLOFT [Suspect]
     Indication: ANTICIPATORY ANXIETY
     Dosage: 25 MG, 1X/DAY
     Route: 048
     Dates: start: 20090715, end: 20100110
  2. TAMSULOSIN [Concomitant]
     Dosage: 400 MG
  3. NAPROXEN [Concomitant]
     Dosage: 500 MG
  4. SENNA [Concomitant]
     Dosage: 2X/DAY
  5. TYLENOL (CAPLET) [Concomitant]
     Dosage: 600MG TO 1200MG ONE OR TWO TABLET AT MORNING AND AT NIGHT
  6. ZANTAC [Concomitant]
     Dosage: 150 MG

REACTIONS (10)
  - ASTHENIA [None]
  - DEATH [None]
  - DYSKINESIA [None]
  - INSOMNIA [None]
  - MUSCLE RIGIDITY [None]
  - MUSCLE TWITCHING [None]
  - SOMNOLENCE [None]
  - TREMOR [None]
  - URINARY INCONTINENCE [None]
  - WRONG TECHNIQUE IN DRUG USAGE PROCESS [None]
